FAERS Safety Report 16289765 (Version 1)
Quarter: 2019Q2

REPORT INFORMATION
  Report Type: Spontaneous
  Country: US (occurrence: US)
  Receive Date: 20190403
  Receipt Date: 20190403
  Transmission Date: 20190711
  Serious: Yes (Hospitalization)
  Sender: FDA-Public Use
  Company Number: None

PATIENT
  Age: 41 Year
  Sex: Female

DRUGS (24)
  1. LAMOTRIGINE. [Concomitant]
     Active Substance: LAMOTRIGINE
  2. NICOTINE TD [Concomitant]
  3. PRAZOSIN HCL [Concomitant]
     Active Substance: PRAZOSIN HYDROCHLORIDE
  4. COSENTYX [Suspect]
     Active Substance: SECUKINUMAB
     Indication: PSORIATIC ARTHROPATHY
     Route: 058
     Dates: start: 20180628
  5. MALTREXONE [Concomitant]
  6. RELPAX [Concomitant]
     Active Substance: ELETRIPTAN HYDROBROMIDE
  7. BUPROPN HCL [Concomitant]
     Active Substance: BUPROPION HYDROCHLORIDE
  8. PROAIR HFA [Concomitant]
     Active Substance: ALBUTEROL SULFATE
  9. GABAPENTIN. [Concomitant]
     Active Substance: GABAPENTIN
  10. OLANZAPINE. [Concomitant]
     Active Substance: OLANZAPINE
  11. ONDANSETRON [Concomitant]
     Active Substance: ONDANSETRON
  12. QUETIAPINE. [Concomitant]
     Active Substance: QUETIAPINE
  13. TIZANIDINE. [Concomitant]
     Active Substance: TIZANIDINE
  14. BUSPIRONE [Concomitant]
     Active Substance: BUSPIRONE HYDROCHLORIDE
  15. CLONAZEPAM. [Concomitant]
     Active Substance: CLONAZEPAM
  16. FOLIC ACID. [Concomitant]
     Active Substance: FOLIC ACID
  17. METHOTREXATE. [Concomitant]
     Active Substance: METHOTREXATE
  18. CYCLOBENZAPR [Concomitant]
     Active Substance: CYCLOBENZAPRINE
  19. FAMOTIDINE. [Concomitant]
     Active Substance: FAMOTIDINE
  20. HYDROXZ PAM [Concomitant]
  21. MIRTAZAPINE. [Concomitant]
     Active Substance: MIRTAZAPINE
  22. OXYCODONE [Concomitant]
     Active Substance: OXYCODONE
  23. ENOXAPARIN [Concomitant]
     Active Substance: ENOXAPARIN
  24. MORPHINE [Concomitant]
     Active Substance: MORPHINE

REACTIONS (2)
  - Therapy cessation [None]
  - Leg amputation [None]

NARRATIVE: CASE EVENT DATE: 20190301
